FAERS Safety Report 10037106 (Version 1)
Quarter: 2014Q1

REPORT INFORMATION
  Report Type: Spontaneous
  Country: AU (occurrence: AU)
  Receive Date: 20140326
  Receipt Date: 20140326
  Transmission Date: 20141002
  Serious: Yes (Death)
  Sender: FDA-Public Use
  Company Number: AU-MYLANLABS-2014S1005848

PATIENT
  Sex: Male

DRUGS (8)
  1. SIROLIMUS [Suspect]
     Indication: IMMUNOSUPPRESSANT DRUG THERAPY
     Route: 065
     Dates: start: 200208
  2. TACROLIMUS [Suspect]
     Indication: IMMUNOSUPPRESSANT DRUG THERAPY
     Route: 065
  3. AZATHIOPRINE [Concomitant]
     Indication: IMMUNOSUPPRESSANT DRUG THERAPY
     Route: 065
     Dates: start: 199603, end: 200208
  4. PREDNISOLONE [Concomitant]
     Indication: IMMUNOSUPPRESSANT DRUG THERAPY
     Route: 065
     Dates: start: 199603
  5. ANTITHYMOCYTE GLOBULIN [Concomitant]
     Indication: LUNG TRANSPLANT REJECTION
     Route: 065
  6. GAMMAGLOBULIN [Concomitant]
     Indication: LUNG TRANSPLANT REJECTION
     Route: 042
  7. CYCLOPHOSPHAMIDE [Concomitant]
     Indication: LUNG TRANSPLANT REJECTION
     Route: 042
     Dates: end: 200902
  8. CYCLOPHOSPHAMIDE [Concomitant]
     Indication: LUNG TRANSPLANT REJECTION
     Route: 048
     Dates: end: 200902

REACTIONS (3)
  - Thrombotic microangiopathy [Fatal]
  - Intestinal perforation [Fatal]
  - Colitis ischaemic [Fatal]
